FAERS Safety Report 16049545 (Version 2)
Quarter: 2019Q2

REPORT INFORMATION
  Report Type: Spontaneous
  Country: US (occurrence: US)
  Receive Date: 20190307
  Receipt Date: 20190422
  Transmission Date: 20190711
  Serious: No
  Sender: FDA-Public Use
  Company Number: US-PFIZER INC-2019091385

PATIENT
  Age: 11 Year
  Sex: Male

DRUGS (1)
  1. GENOTROPIN [Suspect]
     Active Substance: SOMATROPIN
     Indication: GROWTH HORMONE DEFICIENCY
     Dosage: 1 MG, 1X/DAY
     Dates: start: 201812

REACTIONS (3)
  - Product dose omission [Not Recovered/Not Resolved]
  - Wrong technique in device usage process [Unknown]
  - Weight increased [Unknown]

NARRATIVE: CASE EVENT DATE: 20190223
